FAERS Safety Report 15781927 (Version 1)
Quarter: 2019Q1

REPORT INFORMATION
  Report Type: Report from Study
  Country: GR (occurrence: GR)
  Receive Date: 20190102
  Receipt Date: 20190102
  Transmission Date: 20190417
  Serious: Yes (Death, Hospitalization)
  Sender: FDA-Public Use
  Company Number: GR-SA-2018SA311403

PATIENT
  Age: 77 Year
  Sex: Male
  Weight: 64 kg

DRUGS (13)
  1. PENRAZOL [OMEPRAZOLE] [Concomitant]
     Dosage: 20 MG, UNK
     Route: 065
     Dates: start: 20181106
  2. DEXAMETHASONE. [Concomitant]
     Active Substance: DEXAMETHASONE
     Indication: PREMEDICATION
     Dosage: 8 MG, Q3W
     Route: 042
     Dates: start: 20180918, end: 20181130
  3. CALCIORAL D3 [Concomitant]
     Indication: METASTASES TO BONE
     Dosage: 1000 MG PLUS 800 IU, QD
     Route: 048
     Dates: start: 20180918, end: 20181104
  4. CABAZITAXEL [Suspect]
     Active Substance: CABAZITAXEL
     Dosage: 40 MG, Q3W
     Route: 065
     Dates: start: 20181120, end: 20181120
  5. XGEVA [Concomitant]
     Active Substance: DENOSUMAB
     Indication: METASTASES TO BONE
     Dosage: 120 MG, QM
     Route: 065
     Dates: start: 20180918, end: 20181030
  6. FENISTIL [Concomitant]
     Active Substance: DIMETHINDENE
     Indication: PREMEDICATION
     Dosage: 4 MG, Q3W
     Route: 042
     Dates: start: 20180918, end: 20181130
  7. FIRMAGON [Concomitant]
     Active Substance: DEGARELIX ACETATE
     Indication: PROSTATE CANCER
     Dosage: 80 MG, Q3M
     Route: 058
     Dates: start: 20180606, end: 20180712
  8. FILGRASTIM [Concomitant]
     Active Substance: FILGRASTIM
     Indication: PROPHYLAXIS
     Dosage: 48 UG, D7-D11
     Route: 058
     Dates: start: 20180925, end: 20181108
  9. ZANTAC [Concomitant]
     Active Substance: RANITIDINE HYDROCHLORIDE
     Indication: PREMEDICATION
     Dosage: 50 MG, Q3W
     Route: 042
     Dates: start: 20180918, end: 20181130
  10. CABAZITAXEL [Suspect]
     Active Substance: CABAZITAXEL
     Dosage: 40 MG, Q3W
     Route: 065
     Dates: start: 20181030, end: 20181030
  11. ONDASETRON [ONDANSETRON] [Concomitant]
     Indication: PREMEDICATION
     Dosage: 8 MG, Q3W
     Route: 042
     Dates: start: 20180918, end: 20181130
  12. CABAZITAXEL [Suspect]
     Active Substance: CABAZITAXEL
     Indication: PROSTATE CANCER
     Dosage: 40 MG, Q3W
     Route: 065
     Dates: start: 20180912, end: 20180912
  13. PREDNISOLONE. [Suspect]
     Active Substance: PREDNISOLONE
     Indication: PROSTATE CANCER
     Dosage: 10 MG, Q3W
     Route: 048
     Dates: start: 20180912, end: 20181104

REACTIONS (6)
  - Syncope [Unknown]
  - Arthralgia [Unknown]
  - Aortic valve stenosis [Not Recovered/Not Resolved]
  - Dizziness [Recovering/Resolving]
  - Fall [Unknown]
  - Cardiac arrest [Fatal]

NARRATIVE: CASE EVENT DATE: 20181105
